FAERS Safety Report 9618920 (Version 3)
Quarter: 2013Q4

REPORT INFORMATION
  Report Type: Spontaneous
  Country: FR (occurrence: FR)
  Receive Date: 20131014
  Receipt Date: 20131212
  Transmission Date: 20140711
  Serious: Yes (Hospitalization)
  Sender: FDA-Public Use
  Company Number: FR-009507513-1310FRA002367

PATIENT
  Age: 89 Year
  Sex: Female

DRUGS (13)
  1. NORSET [Suspect]
     Dosage: 15 MG, QD
     Route: 048
  2. PAROXETINE [Suspect]
     Indication: DEPRESSION
     Dosage: 20 MG, QD
     Route: 048
     Dates: end: 20130807
  3. ESIDREX [Suspect]
     Indication: HYPERTENSION
     Dosage: 25 MG, QD
     Route: 048
     Dates: end: 20130807
  4. ZOLPIDEM TARTRATE [Suspect]
     Dosage: 1.5 DF, QD
     Route: 048
  5. LOSARTAN POTASSIUM [Suspect]
     Dosage: 50 MG, QD
     Route: 048
  6. ALPRAZOLAM [Suspect]
     Dosage: 0.25 MG, QD
     Route: 048
  7. ALPRAZOLAM [Suspect]
     Dosage: 0.5 MG, QD
     Route: 048
  8. PRADAXA [Concomitant]
     Route: 048
  9. TAHOR [Concomitant]
     Route: 048
  10. OMEPRAZOLE [Concomitant]
     Route: 048
  11. MIANSERIN HYDROCHLORIDE [Concomitant]
     Dosage: 10 MG, QD
     Route: 048
  12. FUROSEMIDE [Concomitant]
     Dosage: 40 MG, QD
     Route: 048
  13. CORGARD [Concomitant]
     Dosage: 0.5 UNK, UNK

REACTIONS (2)
  - Hyponatraemia [Recovered/Resolved]
  - Fall [Recovered/Resolved]
